FAERS Safety Report 8927595 (Version 1)
Quarter: 2012Q4

REPORT INFORMATION
  Report Type: 
  Country: MX (occurrence: MX)
  Receive Date: 20121127
  Receipt Date: 20121127
  Transmission Date: 20130627
  Serious: Yes (Other)
  Sender: FDA-Public Use
  Company Number: PHHY2012MX108092

PATIENT
  Age: 69 Year
  Sex: Male

DRUGS (1)
  1. EXELON [Suspect]
     Indication: PARKINSON^S DISEASE
     Dosage: 9.5 mg/24 hours
     Route: 062

REACTIONS (1)
  - Infarction [Not Recovered/Not Resolved]
